FAERS Safety Report 5164441-X (Version None)
Quarter: 2006Q4

REPORT INFORMATION
  Report Type: 
  Country: None (occurrence: None)
  Receive Date: 20061127
  Receipt Date: 20061127
  Transmission Date: 20070319
  Serious: Yes (Life-Threatening)
  Sender: FDA-Public Use
  Company Number: None

PATIENT
  Age: 60 Year
  Sex: Male
  Weight: 91.3 kg

DRUGS (13)
  1. DEPAKOTE [Suspect]
  2. LORAZEPAM [Concomitant]
  3. ACETAMINOPHEN [Concomitant]
  4. RISPERIDONE MICROSPHERE INJ, SUSP,SA [Concomitant]
  5. MIRTAZAPINE [Concomitant]
  6. IBUPROFEN [Concomitant]
  7. HYDROXYZINE PAMOATE [Concomitant]
  8. FUROSEMIDE [Concomitant]
  9. POTASSIUM CHLORIDE [Concomitant]
  10. DOCUSATE / SENNOSIDES [Concomitant]
  11. MULTI-VITAMIN [Concomitant]
  12. FOLIC ACID [Concomitant]
  13. MILK OF MAGNESIA SUSP [Concomitant]

REACTIONS (1)
  - PANCYTOPENIA [None]
